FAERS Safety Report 8102609-0 (Version None)
Quarter: 2012Q1

REPORT INFORMATION
  Report Type: 
  Country: None (occurrence: None)
  Receive Date: 20120201
  Receipt Date: 20120119
  Transmission Date: 20120608
  Serious: Yes (Life-Threatening, Other)
  Sender: FDA-Public Use
  Company Number: FR-UCBSA-044553

PATIENT
  Age: 78 Year
  Sex: Female
  Weight: 68 kg

DRUGS (4)
  1. IRBESARTAN [Concomitant]
     Route: 048
  2. ALPHACAINE N [Interacting]
     Indication: ANAESTHESIA
     Dosage: ALPHACAINE N 4%, ONE INJECTION
     Dates: start: 20110824, end: 20110824
  3. EZETIMIBE [Concomitant]
     Route: 048
  4. KEPPRA [Suspect]
     Dosage: AT NIGHT
     Route: 048

REACTIONS (3)
  - DRUG INTERACTION [None]
  - STATUS EPILEPTICUS [None]
  - HEMIPLEGIA [None]
